FAERS Safety Report 7917845-3 (Version None)
Quarter: 2011Q4

REPORT INFORMATION
  Report Type: 
  Country: None (occurrence: None)
  Receive Date: 20111116
  Receipt Date: 20111104
  Transmission Date: 20120403
  Serious: Yes (Hospitalization)
  Sender: FDA-Public Use
  Company Number: PHHO2011TR17766

PATIENT
  Sex: Female
  Weight: 82.5 kg

DRUGS (6)
  1. BELOC [Concomitant]
     Indication: CORONARY ARTERY DISEASE
     Dosage: 25 MG, UNK
     Dates: start: 20110813, end: 20111104
  2. CORDARONE [Concomitant]
     Indication: CARDIAC FAILURE CHRONIC
     Dosage: 0.25 MG, UNK
     Dates: start: 20110811, end: 20111104
  3. ALISKIREN [Suspect]
     Indication: CARDIAC FAILURE ACUTE
     Dosage: 300 MG, UNK
     Route: 048
     Dates: start: 20110817, end: 20111102
  4. DESAL [Concomitant]
     Indication: CARDIAC FAILURE CHRONIC
     Dosage: 40 MG, UNK
     Dates: start: 20080101, end: 20111104
  5. RAMIPRIL [Concomitant]
     Indication: CARDIAC FAILURE CHRONIC
     Dosage: 2.5 MG, UNK
     Dates: start: 20080101, end: 20111104
  6. DIGOXIN [Concomitant]
     Indication: CARDIAC FAILURE CHRONIC
     Dosage: UNK
     Dates: start: 20111010, end: 20111019

REACTIONS (1)
  - GASTRITIS [None]
